FAERS Safety Report 20361363 (Version 1)
Quarter: 2022Q1

REPORT INFORMATION
  Report Type: Spontaneous
  Country: AU (occurrence: None)
  Receive Date: 20220121
  Receipt Date: 20220121
  Transmission Date: 20220424
  Serious: Yes (Life-Threatening, Other)
  Sender: FDA-Public Use
  Company Number: 2022A033193

PATIENT
  Sex: Male

DRUGS (3)
  1. GEFITINIB [Suspect]
     Active Substance: GEFITINIB
     Indication: EGFR gene mutation
     Route: 048
     Dates: start: 201802, end: 201812
  2. GEFITINIB [Suspect]
     Active Substance: GEFITINIB
     Indication: Non-small cell lung cancer metastatic
     Route: 048
     Dates: start: 201802, end: 201812
  3. OSIMERTINIB [Concomitant]
     Active Substance: OSIMERTINIB
     Indication: EGFR gene mutation
     Route: 048
     Dates: start: 201901, end: 202009

REACTIONS (4)
  - Malignant neoplasm progression [Unknown]
  - Metastases to bone [Unknown]
  - Metastases to soft tissue [Unknown]
  - EGFR gene mutation [Unknown]
